FAERS Safety Report 21302889 (Version 2)
Quarter: 2022Q3

REPORT INFORMATION
  Report Type: Spontaneous
  Country: IN (occurrence: IN)
  Receive Date: 20220907
  Receipt Date: 20220920
  Transmission Date: 20221026
  Serious: Yes (Death, Other)
  Sender: FDA-Public Use
  Company Number: IN-PFIZER INC-2020062280

PATIENT
  Age: 54 Year
  Sex: Male

DRUGS (4)
  1. SUTENT [Suspect]
     Active Substance: SUNITINIB MALATE
     Indication: Metastatic renal cell carcinoma
     Dosage: 50 MG, 1X/DAY, 2 WEEKS ON AND 1 WEEK OFF
     Route: 048
     Dates: start: 20190102
  2. SUTENT [Suspect]
     Active Substance: SUNITINIB MALATE
     Indication: Gastrointestinal stromal tumour
     Dosage: 50 MG, 1X/DAY (2 WEEKS ON 1 WEEK OFF)
     Route: 048
     Dates: start: 20190820
  3. TELVAS CT [Concomitant]
     Dosage: 1-0-0 X 30DAYS
  4. B-LONG [Concomitant]
     Dosage: 150MG 1-0-1 X 20DAYS

REACTIONS (5)
  - Death [Fatal]
  - Malaise [Unknown]
  - Asthenia [Unknown]
  - Feeding disorder [Unknown]
  - Nausea [Unknown]

NARRATIVE: CASE EVENT DATE: 20220725
